FAERS Safety Report 17102288 (Version 1)
Quarter: 2019Q4

REPORT INFORMATION
  Report Type: Spontaneous
  Country: US (occurrence: US)
  Receive Date: 20191202
  Receipt Date: 20191202
  Transmission Date: 20200122
  Serious: Yes (Other)
  Sender: FDA-Public Use
  Company Number: US-JNJFOC-20191133087

PATIENT
  Age: 67 Year
  Sex: Female
  Weight: 79.45 kg

DRUGS (5)
  1. XARELTO [Suspect]
     Active Substance: RIVAROXABAN
     Indication: THROMBOSIS
     Route: 048
     Dates: start: 20170209
  2. PREDNISONE. [Concomitant]
     Active Substance: PREDNISONE
     Indication: PAIN
  3. LORAZEPAM. [Concomitant]
     Active Substance: LORAZEPAM
  4. DEXALONE                           /00016001/ [Concomitant]
  5. XARELTO [Suspect]
     Active Substance: RIVAROXABAN
     Indication: BLOOD DISORDER

REACTIONS (7)
  - Deep vein thrombosis [Unknown]
  - Nerve injury [Unknown]
  - Arthralgia [Unknown]
  - Venous injury [Unknown]
  - Amnesia [Unknown]
  - Upper limb fracture [Unknown]
  - Arthropathy [Unknown]

NARRATIVE: CASE EVENT DATE: 20190624
